FAERS Safety Report 12747716 (Version 6)
Quarter: 2018Q2

REPORT INFORMATION
  Report Type: Spontaneous
  Country: US (occurrence: US)
  Receive Date: 20160915
  Receipt Date: 20180511
  Transmission Date: 20180711
  Serious: Yes (Hospitalization, Other)
  Sender: FDA-Public Use
  Company Number: US-ASTELLAS-2016US004340

PATIENT
  Sex: Male

DRUGS (1)
  1. XTANDI [Suspect]
     Active Substance: ENZALUTAMIDE
     Indication: PROSTATE CANCER
     Dosage: 160 MG (4 CAPSULES), ONCE DAILY
     Route: 065
     Dates: start: 20151101

REACTIONS (8)
  - Peripheral swelling [Recovered/Resolved]
  - Splenectomy [Unknown]
  - Weight decreased [Recovered/Resolved]
  - Hot flush [Recovered/Resolved]
  - Orthostatic hypotension [Unknown]
  - Fatigue [Not Recovered/Not Resolved]
  - Blood urine present [Unknown]
  - Dizziness [Not Recovered/Not Resolved]
